FAERS Safety Report 4928738-8 (Version None)
Quarter: 2006Q1

REPORT INFORMATION
  Report Type: 
  Country: None (occurrence: None)
  Receive Date: 20060227
  Receipt Date: 20060227
  Transmission Date: 20060701
  Serious: Yes (Hospitalization)
  Sender: FDA-Public Use
  Company Number: None

PATIENT
  Age: 55 Year
  Sex: Male
  Weight: 67.4 kg

DRUGS (8)
  1. KYTRIL [Suspect]
     Indication: NAUSEA
     Dosage: 1 MG DAILY PO
     Route: 048
  2. COMPAZINE [Suspect]
     Indication: NAUSEA
     Dosage: 10 MG Q6HR PRN PO
     Route: 048
  3. NEXIUM [Suspect]
     Indication: GASTROOESOPHAGEAL REFLUX DISEASE
     Dosage: 20 MG DAILY PO
     Route: 048
  4. AMBIEN CR [Suspect]
     Indication: INSOMNIA
     Dosage: 12.5 MG QHS PO
     Route: 048
  5. PERCOCET [Suspect]
     Indication: PAIN
     Dosage: 5 MG Q4HR PRN PO
     Route: 048
  6. FLUOROURACIL [Suspect]
     Indication: NEOPLASM MALIGNANT
     Dosage: 1880 MG QD X 96 HR IV
     Route: 042
     Dates: start: 20060116, end: 20060120
  7. CISPLATIN [Suspect]
     Indication: NEOPLASM MALIGNANT
     Dosage: 38 MG QD X 96H IV
     Route: 042
     Dates: start: 20060116, end: 20060120
  8. IRESSA [Suspect]
     Indication: NEOPLASM MALIGNANT
     Dosage: 250 MG DAILY PO
     Route: 048
     Dates: start: 20060116, end: 20060201

REACTIONS (5)
  - BACK PAIN [None]
  - FEBRILE NEUTROPENIA [None]
  - PAIN IN EXTREMITY [None]
  - SPINAL COLUMN STENOSIS [None]
  - VASCULAR INSUFFICIENCY [None]
